FAERS Safety Report 7679419-1 (Version None)
Quarter: 2011Q3

REPORT INFORMATION
  Report Type: 
  Country: None (occurrence: None)
  Receive Date: 20110809
  Receipt Date: 20110725
  Transmission Date: 20111222
  Serious: Yes (Death, Other)
  Sender: FDA-Public Use
  Company Number: 1000021778

PATIENT
  Age: 80 Year
  Sex: Male
  Weight: 100 kg

DRUGS (16)
  1. ROFLUMILAST (ROFLUMILAST) (TABLETS) [Suspect]
     Indication: CHRONIC OBSTRUCTIVE PULMONARY DISEASE
     Dosage: 500 MCG (500 MCG,1 IN 1 D), ORAL
     Route: 048
     Dates: start: 20110329
  2. PANTOPRAZOLE (PANTOPRAZOLE) (PANTOPRAZOLE) [Concomitant]
  3. PHENPROCOUMON (PHENPROCOUMON) (PHENPROCOUMON) [Concomitant]
  4. NULYTELY (POLYETHYLENE GLYCOL, POTASSIUM CHLORIDE, SODIUM BICARBONATE) [Concomitant]
  5. TRI-THIAZID (TRIAMTERENE, HYDROCHLOROTHIAZIDE) (TRIAMTERENE, HYDROCHLO [Concomitant]
  6. TARGIN (OXYCODONE HYDROCHLORIDE, NALOXONE) (OXYCODONE HYDROCHLORIDE, N [Concomitant]
  7. OXYGEN [Suspect]
     Dosage: AS NEEDED
  8. ACETYLCYSTEINE (ACETYLCYSTEINE) (ACETYLCYTSTEINE) [Concomitant]
  9. METAMIZOLE (METAMIZOLE) (METAMIZOLE) [Concomitant]
  10. THEOPHYLLINE [Concomitant]
  11. SPIRIVA (TIOTROPIUM BROMIDE) (TIOTROPIUM BROMIDE) [Concomitant]
  12. SYMBICORT (BUDESONIDE, FOMOTEROL FUMARATE) (BUDESONIDE, FOMOTEROL FUMA [Concomitant]
  13. PREDNISOLONE [Concomitant]
  14. RAMIPRIL [Concomitant]
  15. BAYMYCARD (NISOLIDIPINE) (NISOLIDIPINE) [Concomitant]
  16. TORASEMIDE (TORASEMIDE) (TORASEMIDE) [Concomitant]

REACTIONS (4)
  - RESPIRATORY FAILURE [None]
  - OSTEOPOROSIS [None]
  - PAIN [None]
  - SPINAL FRACTURE [None]
